FAERS Safety Report 13436508 (Version 1)
Quarter: 2017Q2

REPORT INFORMATION
  Report Type: Spontaneous
  Country: US (occurrence: US)
  Receive Date: 20170412
  Receipt Date: 20170412
  Transmission Date: 20170830
  Serious: Yes (Death)
  Sender: FDA-Public Use
  Company Number: None

PATIENT
  Age: 72 Year
  Sex: Male

DRUGS (1)
  1. PROCRIT [Suspect]
     Active Substance: ERYTHROPOIETIN
     Indication: MALAISE
     Dosage: 10,000 UNITS WEEKLY SUBQ
     Route: 058
     Dates: start: 20161101, end: 20170315

REACTIONS (2)
  - Cardiac failure congestive [None]
  - Condition aggravated [None]

NARRATIVE: CASE EVENT DATE: 20170315
